FAERS Safety Report 18057705 (Version 2)
Quarter: 2020Q3

REPORT INFORMATION
  Report Type: Spontaneous
  Country: DE (occurrence: DE)
  Receive Date: 20200723
  Receipt Date: 20200805
  Transmission Date: 20201103
  Serious: Yes (Hospitalization)
  Sender: FDA-Public Use
  Company Number: DE-TEVA-2020-DE-1803980

PATIENT
  Age: 33 Year
  Sex: Male
  Weight: 83 kg

DRUGS (2)
  1. EMTRICITABIN/TENOFOVIRDISOPROXIL?RATIOPHARM 200 MG/245 MG FILMTABLETTE [Suspect]
     Active Substance: EMTRICITABINE\TENOFOVIR DISOPROXIL FUMARATE
     Dosage: ONE TABLET CONTAINS 200 MG EMTRICITABIN AND 245 MG TENOFOVIRDISOPROXIL
     Route: 048
     Dates: end: 2020
  2. EMTRICITABIN/TENOFOVIRDISOPROXIL?RATIOPHARM 200 MG/245 MG FILMTABLETTE [Suspect]
     Active Substance: EMTRICITABINE\TENOFOVIR DISOPROXIL FUMARATE
     Indication: PROPHYLAXIS AGAINST HIV INFECTION
     Dosage: 1 DOSAGE FORMS DAILY; ONE TABLET CONTAINS 200 MG EMTRICITABIN AND 245 MG TENOFOVIRDISOPROXIL
     Route: 048
     Dates: start: 20200713, end: 20200716

REACTIONS (7)
  - Vomiting [Recovering/Resolving]
  - Product substitution issue [Unknown]
  - Abdominal pain upper [Recovering/Resolving]
  - Malaise [Recovering/Resolving]
  - Gastritis [Unknown]
  - Nausea [Recovering/Resolving]
  - Abdominal discomfort [Unknown]

NARRATIVE: CASE EVENT DATE: 20200715
